FAERS Safety Report 12945729 (Version 1)
Quarter: 2016Q4

REPORT INFORMATION
  Report Type: Spontaneous
  Country: BR (occurrence: BR)
  Receive Date: 20161115
  Receipt Date: 20161115
  Transmission Date: 20170207
  Serious: Yes (Other)
  Sender: FDA-Public Use
  Company Number: BR-SLOAN PHARMA-USW201611-000758

PATIENT
  Sex: Male
  Weight: 104 kg

DRUGS (4)
  1. ZELNORM [Suspect]
     Active Substance: TEGASEROD MALEATE
     Indication: GASTROINTESTINAL DISORDER
     Route: 048
     Dates: start: 2008
  2. ZELNORM [Suspect]
     Active Substance: TEGASEROD MALEATE
     Indication: FEELING ABNORMAL
  3. ZELNORM [Suspect]
     Active Substance: TEGASEROD MALEATE
     Indication: INTESTINAL OBSTRUCTION
  4. ZELNORM [Suspect]
     Active Substance: TEGASEROD MALEATE
     Indication: ANAESTHETIC COMPLICATION

REACTIONS (4)
  - Dyschezia [Unknown]
  - Product use issue [Unknown]
  - Helminthic infection [Unknown]
  - Intestinal obstruction [Not Recovered/Not Resolved]
